FAERS Safety Report 20431573 (Version 1)
Quarter: 2022Q1

REPORT INFORMATION
  Report Type: Spontaneous
  Country: US (occurrence: US)
  Receive Date: 20220204
  Receipt Date: 20220204
  Transmission Date: 20220423
  Serious: Yes (Hospitalization)
  Sender: FDA-Public Use
  Company Number: US-TOPROL-2022000024

PATIENT
  Age: 77 Year
  Sex: Male

DRUGS (9)
  1. METOPROLOL SUCCINATE [Suspect]
     Active Substance: METOPROLOL SUCCINATE
  2. MYCOPHENOLIC ACID [Suspect]
     Active Substance: MYCOPHENOLIC ACID
  3. TACROLIMUS [Suspect]
     Active Substance: TACROLIMUS
  4. PREDNISONE [Suspect]
     Active Substance: PREDNISONE
  5. PANTOPRAZOLE [Suspect]
     Active Substance: PANTOPRAZOLE
  6. RIFABUTIN [Suspect]
     Active Substance: RIFABUTIN
  7. ISONIAZID [Suspect]
     Active Substance: ISONIAZID
  8. PYRAZINAMIDE [Suspect]
     Active Substance: PYRAZINAMIDE
  9. ETHAMBUTOL [Suspect]
     Active Substance: ETHAMBUTOL HYDROCHLORIDE

REACTIONS (4)
  - Hypergammaglobulinaemia [Unknown]
  - Pseudohyponatraemia [Unknown]
  - Anion gap [Unknown]
  - Pseudohyperphosphataemia [Unknown]
